FAERS Safety Report 5917463-2 (Version None)
Quarter: 2008Q4

REPORT INFORMATION
  Report Type: 
  Country: None (occurrence: None)
  Receive Date: 20081014
  Receipt Date: 20081003
  Transmission Date: 20090506
  Serious: Yes (Other)
  Sender: FDA-Public Use
  Company Number: US-WYE-H06253608

PATIENT
  Age: 9 Month
  Sex: Male

DRUGS (1)
  1. BROMPHENIRAMINE MALEATE + PSEUDOEPHEDRINE HCL [Suspect]
     Indication: COUGH
     Dosage: UNKNOWN
     Route: 048

REACTIONS (3)
  - ADVERSE DRUG REACTION [None]
  - LETHARGY [None]
  - LISTLESS [None]
